FAERS Safety Report 21636228 (Version 11)
Quarter: 2024Q1

REPORT INFORMATION
  Report Type: Report from Study
  Country: GB (occurrence: GB)
  Receive Date: 20221124
  Receipt Date: 20240329
  Transmission Date: 20240409
  Serious: Yes (Other)
  Sender: FDA-Public Use
  Company Number: GB-ABBVIE-4156541

PATIENT
  Age: 76 Year
  Sex: Male

DRUGS (22)
  1. CARBIDOPA\LEVODOPA [Suspect]
     Active Substance: CARBIDOPA\LEVODOPA
     Indication: Parkinson^s disease
     Dosage: MD:10.8, CR:3.0, ED:1.6
     Route: 050
     Dates: start: 2022, end: 2022
  2. CARBIDOPA\LEVODOPA [Suspect]
     Active Substance: CARBIDOPA\LEVODOPA
     Dosage: DUODOPA 20MGS/5MGS; MD: 10.8, CR: 3.2, ED:1.6
     Route: 050
     Dates: start: 2022, end: 2022
  3. CARBIDOPA\LEVODOPA [Suspect]
     Active Substance: CARBIDOPA\LEVODOPA
     Dosage: MD:10.8, ED:1.8, CR: 3.2, DUODOPA 20MGS/5MGS
     Route: 050
     Dates: start: 2022, end: 2022
  4. CARBIDOPA\LEVODOPA [Suspect]
     Active Substance: CARBIDOPA\LEVODOPA
     Dosage: MD:10.8, CR: 2.8, ED:1.2
     Route: 050
     Dates: start: 2022, end: 2022
  5. CARBIDOPA\LEVODOPA [Suspect]
     Active Substance: CARBIDOPA\LEVODOPA
     Dosage: DUODOPA 20MGS/5MGS; MD:10.8, CR: 2.8, ED:1.4
     Route: 050
     Dates: start: 2022, end: 2022
  6. CARBIDOPA\LEVODOPA [Suspect]
     Active Substance: CARBIDOPA\LEVODOPA
     Dosage: MD: 10.8MLS  CR:3.2MLS ED:1.8MLS, 20MGS/5MGS
     Route: 050
     Dates: start: 2023, end: 2023
  7. CARBIDOPA\LEVODOPA [Suspect]
     Active Substance: CARBIDOPA\LEVODOPA
     Dosage: MD: 10.8MLS  CR:3.2MLS ED:1.8MLS, 20MGS/5MGS
     Route: 050
     Dates: end: 2023
  8. CARBIDOPA\LEVODOPA [Suspect]
     Active Substance: CARBIDOPA\LEVODOPA
     Dosage: MD: 10.8MLS, CR: 3.2MLS, ED:1.6MLS
     Route: 050
     Dates: start: 2022, end: 2022
  9. CARBIDOPA\LEVODOPA [Suspect]
     Active Substance: CARBIDOPA\LEVODOPA
     Dosage: MD: 10.8MLS CR: 3.4MLS ED: 1.8MLS, 20MGS/5MGS
     Route: 050
     Dates: start: 2022
  10. CARBIDOPA\LEVODOPA [Suspect]
     Active Substance: CARBIDOPA\LEVODOPA
     Dosage: MD:10.8MLS, CR: 3.0ML, ED:1.6MLS
     Route: 050
     Dates: start: 2022, end: 2022
  11. CARBIDOPA\LEVODOPA [Suspect]
     Active Substance: CARBIDOPA\LEVODOPA
     Dosage: MD 10.8 MLS  CR  3.2 MLS   ED 1.8 MLS
     Route: 050
     Dates: start: 2023, end: 2023
  12. CARBIDOPA\LEVODOPA [Suspect]
     Active Substance: CARBIDOPA\LEVODOPA
     Dosage: MD 10.6 MLS  CR  3.0 MLS   ED 1.8 MLS
     Route: 050
     Dates: start: 202310
  13. REPINEX [Concomitant]
     Indication: Product used for unknown indication
     Dosage: 4 MILLIGRAM
  14. REPINEX [Concomitant]
     Indication: Product used for unknown indication
     Dosage: FREQUENCY TEXT: IN AM?FREQUENCY TEXT: IN PM
  15. ROPINIROLE [Concomitant]
     Active Substance: ROPINIROLE
     Indication: Parkinson^s disease
     Route: 048
  16. CARBIDOPA\LEVODOPA [Concomitant]
     Active Substance: CARBIDOPA\LEVODOPA
     Indication: Parkinson^s disease
     Dosage: FREQUENCY TEXT: AT NIGHT
     Route: 048
  17. MELATONIN [Concomitant]
     Active Substance: MELATONIN
     Indication: Product used for unknown indication
  18. BENSERAZIDE HYDROCHLORIDE\LEVODOPA [Concomitant]
     Active Substance: BENSERAZIDE HYDROCHLORIDE\LEVODOPA
     Indication: Parkinson^s disease
     Dosage: 12.5/50MGS
     Route: 048
  19. SAFINAMIDE [Concomitant]
     Active Substance: SAFINAMIDE
     Indication: Parkinson^s disease
     Dosage: FREQUENCY TEXT: AT 3 PM
     Route: 048
  20. AMANTADINE [Concomitant]
     Active Substance: AMANTADINE
     Indication: Parkinson^s disease
     Dosage: FREQUENCY TEXT: AT 7/8AM AND 12.00PM
     Route: 050
  21. AMANTADINE [Concomitant]
     Active Substance: AMANTADINE
     Indication: Parkinson^s disease
     Dosage: AT 11AM
     Route: 048
  22. STANEK [Concomitant]
     Indication: Product used for unknown indication

REACTIONS (28)
  - Urinary tract obstruction [Recovering/Resolving]
  - On and off phenomenon [Unknown]
  - Social avoidant behaviour [Unknown]
  - Device occlusion [Unknown]
  - Device issue [Recovered/Resolved]
  - Constipation [Recovered/Resolved]
  - Freezing phenomenon [Not Recovered/Not Resolved]
  - Memory impairment [Unknown]
  - Dyskinesia [Recovered/Resolved]
  - Cognitive disorder [Unknown]
  - Fall [Not Recovered/Not Resolved]
  - Fatigue [Unknown]
  - Weight decreased [Recovered/Resolved]
  - Anxiety [Unknown]
  - Balance disorder [Unknown]
  - Unevaluable event [Not Recovered/Not Resolved]
  - Dyskinesia [Unknown]
  - Chills [Not Recovered/Not Resolved]
  - Confusional state [Not Recovered/Not Resolved]
  - Depressed mood [Not Recovered/Not Resolved]
  - Device dislocation [Recovered/Resolved]
  - Muscle rigidity [Not Recovered/Not Resolved]
  - Wrong technique in device usage process [Unknown]
  - Device issue [Recovered/Resolved]
  - Fall [Recovered/Resolved]
  - Therapeutic product effect incomplete [Unknown]
  - Abnormal dreams [Not Recovered/Not Resolved]
  - Incorrect route of product administration [Not Recovered/Not Resolved]

NARRATIVE: CASE EVENT DATE: 20220101
